FAERS Safety Report 4444707-9 (Version None)
Quarter: 2004Q3

REPORT INFORMATION
  Report Type: 
  Country: None (occurrence: None)
  Receive Date: 20040909
  Receipt Date: 20040405
  Transmission Date: 20050211
  Serious: Yes (Death)
  Sender: FDA-Public Use
  Company Number: IT-BRISTOL-MYERS SQUIBB COMPANY-12556593

PATIENT
  Age: 78 Year
  Sex: Female
  Weight: 50 kg

DRUGS (4)
  1. CYCLOPHOSPHAMIDE [Suspect]
     Indication: LYMPHOMA
     Dosage: THERAPY DATES: 13-AUG, 03-SEP, 24-SEP, 15-OCT-2001
     Route: 048
     Dates: start: 20010813, end: 20011015
  2. ETOPOSIDE [Suspect]
     Indication: LYMPHOMA
     Dosage: THERAPY DATES: 13-AUG, 03-SEP, 24-SEP, 15-OCT-2001
     Route: 048
     Dates: start: 20010813, end: 20011015
  3. IDARUBICIN HCL [Suspect]
     Indication: LYMPHOMA
     Dosage: THERAPY DATES: 13-AUG, 03-SEP, 24-SEP, 15-OCT-2001
     Route: 048
     Dates: start: 20010813, end: 20011015
  4. PREDNISONE [Suspect]
     Indication: LYMPHOMA
     Dosage: THERAPY DATES: 13-AUG, 03-SEP, 24-SEP, 15-OCT-2001
     Route: 048
     Dates: start: 20010813, end: 20011015

REACTIONS (1)
  - CARDIAC ARREST [None]
